FAERS Safety Report 6401536-4 (Version None)
Quarter: 2009Q4

REPORT INFORMATION
  Report Type: 
  Country: None (occurrence: None)
  Receive Date: 20091013
  Receipt Date: 20091013
  Transmission Date: 20100525
  Serious: Yes (Hospitalization)
  Sender: FDA-Public Use
  Company Number: None

PATIENT
  Age: 30 Year
  Sex: Female
  Weight: 68.9467 kg

DRUGS (2)
  1. CYMBALTA [Suspect]
     Indication: DYSPNOEA
     Dosage: 1 30MG
     Dates: start: 20091002, end: 20091002
  2. CYMBALTA [Suspect]
     Indication: PANIC ATTACK
     Dosage: 1 30MG
     Dates: start: 20091002, end: 20091002

REACTIONS (3)
  - CHEST PAIN [None]
  - DYSPNOEA [None]
  - PANIC ATTACK [None]
